FAERS Safety Report 10224261 (Version 1)
Quarter: 2014Q2

REPORT INFORMATION
  Report Type: Spontaneous
  Country: KR (occurrence: KR)
  Receive Date: 20140609
  Receipt Date: 20140609
  Transmission Date: 20141212
  Serious: Yes (Other)
  Sender: FDA-Public Use
  Company Number: KR-009507513-1406KOR003284

PATIENT
  Sex: 0

DRUGS (1)
  1. FOSAMAX PLUS [Suspect]
     Route: 048

REACTIONS (1)
  - Osteonecrosis [Not Recovered/Not Resolved]
